FAERS Safety Report 7918355-X (Version None)
Quarter: 2011Q4

REPORT INFORMATION
  Report Type: 
  Country: None (occurrence: None)
  Receive Date: 20111116
  Receipt Date: 20111109
  Transmission Date: 20120403
  Serious: Yes (Death)
  Sender: FDA-Public Use
  Company Number: NL-ELI_LILLY_AND_COMPANY-NL201111003184

PATIENT
  Sex: Male

DRUGS (1)
  1. ADCIRCA [Suspect]
     Dosage: 20 MG, OTHER

REACTIONS (1)
  - ADVERSE EVENT [None]
